FAERS Safety Report 25927935 (Version 1)
Quarter: 2025Q4

REPORT INFORMATION
  Report Type: Spontaneous
  Country: EU (occurrence: EU)
  Receive Date: 20251016
  Receipt Date: 20251016
  Transmission Date: 20260118
  Serious: Yes (Other)
  Sender: Haleon PLC
  Company Number: EU-TEVA-VS-3167647

PATIENT
  Age: 35 Year
  Sex: Female

DRUGS (1)
  1. VOLTAREN [Suspect]
     Active Substance: DICLOFENAC SODIUM
     Indication: Pelvic inflammatory disease

REACTIONS (3)
  - Desmoid tumour [Not Recovered/Not Resolved]
  - Lack of injection site rotation [Unknown]
  - Incorrect route of product administration [Unknown]
